FAERS Safety Report 5053815-3 (Version None)
Quarter: 2006Q3

REPORT INFORMATION
  Report Type: 
  Country: None (occurrence: None)
  Receive Date: 20060718
  Receipt Date: 20060627
  Transmission Date: 20061208
  Serious: Yes (Other)
  Sender: FDA-Public Use
  Company Number: US-GLAXOSMITHKLINE-A0611135A

PATIENT
  Sex: Female
  Weight: 71.4 kg

DRUGS (9)
  1. PAXIL [Suspect]
     Indication: ANXIETY
     Route: 048
  2. XANAX [Concomitant]
     Indication: PANIC DISORDER
  3. DIOVAN [Concomitant]
  4. INDERAL [Concomitant]
  5. FIORICET [Concomitant]
     Indication: HEADACHE
  6. TOPAMAX [Concomitant]
  7. SYNTHROID [Concomitant]
  8. HYDROCHLOROTHIAZIDE [Concomitant]
  9. BUSPAR [Concomitant]

REACTIONS (16)
  - ABNORMAL DREAMS [None]
  - ANXIETY [None]
  - BALANCE DISORDER [None]
  - CRYING [None]
  - DEPRESSION [None]
  - DIZZINESS [None]
  - DRUG WITHDRAWAL SYNDROME [None]
  - GASTROINTESTINAL DISORDER [None]
  - HYPERACUSIS [None]
  - HYPERHIDROSIS [None]
  - MANIA [None]
  - NAUSEA [None]
  - OBSESSIVE-COMPULSIVE DISORDER [None]
  - PARAESTHESIA [None]
  - PHOTOSENSITIVITY REACTION [None]
  - SLEEP DISORDER [None]
